FAERS Safety Report 6253814-X (Version None)
Quarter: 2009Q2

REPORT INFORMATION
  Report Type: 
  Country: None (occurrence: None)
  Receive Date: 20090630
  Receipt Date: 20090630
  Transmission Date: 20091009
  Serious: No
  Sender: FDA-Public Use
  Company Number: None

PATIENT

DRUGS (2)
  1. FENTANYL TRANSDERMAL SYSTEM [Suspect]
     Dosage: 1 PATCH EVERY 72 HOURS TRANSDERMAL
     Route: 062
     Dates: start: 20090624, end: 20090626
  2. FENTANYL TRANSDERMAL SYSTEM [Suspect]
     Dosage: 1 PATCH EVERY 72 HOURS TRANSDERMAL
     Route: 062
     Dates: start: 20090626, end: 20090629

REACTIONS (2)
  - MEDICAL DEVICE COMPLICATION [None]
  - MEDICATION ERROR [None]
